FAERS Safety Report 10058303 (Version 1)
Quarter: 2014Q2

REPORT INFORMATION
  Report Type: Spontaneous
  Country: US (occurrence: None)
  Receive Date: 20140403
  Receipt Date: 20140403
  Transmission Date: 20141212
  Serious: Yes (Disabling, Other)
  Sender: FDA-Public Use
  Company Number: None

PATIENT
  Sex: Male
  Weight: 110.68 kg

DRUGS (5)
  1. OYSTER SHELL CALCIUM [Suspect]
     Indication: BLOOD CHOLESTEROL INCREASED
     Route: 048
     Dates: start: 20110101
  2. OYSTER SHELL CALCIUM [Suspect]
     Indication: MINERAL SUPPLEMENTATION
     Route: 048
     Dates: start: 20110101
  3. OYSTER SHELL CALCIUM [Suspect]
     Indication: VITAMIN SUPPLEMENTATION
     Route: 048
     Dates: start: 20110101
  4. EPZICON [Concomitant]
  5. ACYCLOVR [Concomitant]

REACTIONS (2)
  - Aggression [None]
  - Hypersensitivity [None]
